FAERS Safety Report 25448824 (Version 1)
Quarter: 2025Q2

REPORT INFORMATION
  Report Type: Spontaneous
  Country: CN (occurrence: CN)
  Receive Date: 20250618
  Receipt Date: 20250618
  Transmission Date: 20250716
  Serious: Yes (Life-Threatening)
  Sender: NOVO NORDISK
  Company Number: CN-NOVOPROD-1455863

PATIENT
  Sex: Female

DRUGS (1)
  1. SEMAGLUTIDE [Suspect]
     Active Substance: SEMAGLUTIDE
     Indication: Product used for unknown indication
     Route: 042

REACTIONS (3)
  - Near death experience [Unknown]
  - Incorrect route of product administration [Unknown]
  - Vomiting [Unknown]
